FAERS Safety Report 7324649-1 (Version None)
Quarter: 2011Q1

REPORT INFORMATION
  Report Type: 
  Country: None (occurrence: None)
  Receive Date: 20110301
  Receipt Date: 20110217
  Transmission Date: 20110831
  Serious: Yes (Hospitalization)
  Sender: FDA-Public Use
  Company Number: PHHY2011US14051

PATIENT
  Age: 63 Year
  Sex: Male
  Weight: 66 kg

DRUGS (12)
  1. FUROSEMIDE [Concomitant]
     Dosage: 40 MG, QD
  2. NITROGLYCERIN [Concomitant]
     Indication: CHEST PAIN
     Dosage: UNK, AS REQUIRED
  3. ISOSORBIDE MONONITRATE [Concomitant]
     Dosage: 120 MG, QD
  4. CLOPIDOGREL [Concomitant]
     Dosage: 75 MG, QD
  5. SIMVASTATIN [Suspect]
     Indication: HYPERLIPIDAEMIA
     Dosage: 80 MG, QD
  6. HYDRALAZINE [Concomitant]
     Dosage: 30 MG, EVERY 6 HR
     Route: 048
  7. METOPROLOL [Concomitant]
     Dosage: 50 MG, BID
  8. RANOLAZINE [Interacting]
     Dosage: 500 MG, QD
  9. HYDRALAZINE [Concomitant]
     Dosage: 50 MG, TID
  10. OMEPRAZOLE [Concomitant]
     Dosage: 40 MG, QD
  11. OMEPRAZOLE [Concomitant]
     Dosage: 20 MG, QD
  12. ISOSORBIDE MONONITRATE [Concomitant]
     Dosage: 30 MG, QD
     Route: 048

REACTIONS (13)
  - CARDIAC FAILURE CONGESTIVE [None]
  - PULMONARY OEDEMA [None]
  - HYPOXIA [None]
  - MUSCULAR WEAKNESS [None]
  - GAIT DISTURBANCE [None]
  - RESPIRATORY FAILURE [None]
  - ATRIAL FIBRILLATION [None]
  - CONCOMITANT DISEASE AGGRAVATED [None]
  - PNEUMONIA [None]
  - RHABDOMYOLYSIS [None]
  - THROMBOSIS [None]
  - DRUG INTERACTION [None]
  - ELECTROCARDIOGRAM QT PROLONGED [None]
